FAERS Safety Report 9167801 (Version 1)
Quarter: 2013Q1

REPORT INFORMATION
  Report Type: Spontaneous
  Country: US (occurrence: None)
  Receive Date: 20130314
  Receipt Date: 20130314
  Transmission Date: 20140127
  Serious: Yes (Death)
  Sender: FDA-Public Use
  Company Number: TPA2013A02047

PATIENT
  Age: 55 Year
  Sex: Male

DRUGS (1)
  1. ACTOPLUS MET [Suspect]
     Indication: DIABETES MELLITUS
     Route: 048

REACTIONS (1)
  - Death [None]
